FAERS Safety Report 25938577 (Version 1)
Quarter: 2025Q4

REPORT INFORMATION
  Report Type: Spontaneous
  Country: US (occurrence: US)
  Receive Date: 20251019
  Receipt Date: 20251019
  Transmission Date: 20260118
  Serious: No
  Sender: GALDERMA
  Company Number: US-GALDERMA-US2025018841

PATIENT

DRUGS (8)
  1. NEMLUVIO [Suspect]
     Active Substance: NEMOLIZUMAB-ILTO
     Indication: Dermatitis atopic
     Dosage: 60 MILLIGRAM, LOADING DOSE, APPLIED ON THE TOP OF THE THIGH, EVERY 4 WEEKS
     Route: 058
     Dates: start: 20250910, end: 20250910
  2. NEMLUVIO [Suspect]
     Active Substance: NEMOLIZUMAB-ILTO
     Indication: Eczema
  3. KESIMPTA [Concomitant]
     Active Substance: OFATUMUMAB
     Indication: Multiple sclerosis
     Dosage: 20 MILLIGRAM, EVERY 28 DAYS, ONE PEN
  4. ALBUTEROL [Concomitant]
     Active Substance: ALBUTEROL
     Indication: Asthma
     Dosage: AS NEEDED
     Dates: start: 2025
  5. HYDROCHLOROTHIAZIDE [Concomitant]
     Active Substance: HYDROCHLOROTHIAZIDE
     Indication: Blood pressure increased
     Dosage: 12.5 MILLIGRAM, QD
  6. PRIMIDONE [Concomitant]
     Active Substance: PRIMIDONE
     Indication: Multiple sclerosis
     Dosage: 25 MILLIGRAM, BID, IN MORNING AND AT NIGHT
  7. OXYBUTYNIN [Concomitant]
     Active Substance: OXYBUTYNIN
     Indication: Urinary incontinence
     Dosage: 20 MILLIGRAM, QD
  8. WELLBUTRIN [Concomitant]
     Active Substance: BUPROPION HYDROCHLORIDE
     Indication: Anxiety
     Dosage: 300 MILLIGRAM IN MORNING AND 150 MG AT NIGHT

REACTIONS (5)
  - Pruritus [Unknown]
  - Rash papular [Unknown]
  - Rash [Unknown]
  - Purulent discharge [Unknown]
  - Sleep disorder [Unknown]

NARRATIVE: CASE EVENT DATE: 20250901
